FAERS Safety Report 9145704 (Version 1)
Quarter: 2013Q1

REPORT INFORMATION
  Report Type: Spontaneous
  Country: ES (occurrence: ES)
  Receive Date: 20130307
  Receipt Date: 20130307
  Transmission Date: 20140127
  Serious: Yes (Other)
  Sender: FDA-Public Use
  Company Number: ES-BRISTOL-MYERS SQUIBB COMPANY-17421207

PATIENT
  Age: 62 Year
  Sex: Female

DRUGS (3)
  1. TRIGON [Suspect]
     Dosage: 08-DEC-2012?1DF: 40MG/ML
     Route: 042
     Dates: start: 2012
  2. DICLOFENAC SODIUM [Interacting]
     Dosage: 10-OCT-2012
     Route: 030
     Dates: start: 2012
  3. METAMIZOL [Suspect]
     Route: 048
     Dates: start: 20121208

REACTIONS (3)
  - Medication error [Recovered/Resolved]
  - Upper gastrointestinal haemorrhage [Unknown]
  - Drug interaction [Unknown]
